FAERS Safety Report 6354724-X (Version None)
Quarter: 2009Q3

REPORT INFORMATION
  Report Type: 
  Country: None (occurrence: None)
  Receive Date: 20090909
  Receipt Date: 20090901
  Transmission Date: 20100115
  Serious: Yes (Other)
  Sender: FDA-Public Use
  Company Number: TRP_06403_2009

PATIENT
  Age: 52 Year
  Sex: Female

DRUGS (2)
  1. RIBAVARIN [Suspect]
     Indication: HEPATITIS C
     Dosage: DF
     Dates: start: 20090528, end: 20090728
  2. PEG-INTRON [Suspect]
     Indication: HEPATITIS C
     Dosage: DF SUBCUTANEOUS
     Route: 058
     Dates: start: 20090528, end: 20090729

REACTIONS (3)
  - EAR DISCOMFORT [None]
  - HEADACHE [None]
  - RETINAL TEAR [None]
